FAERS Safety Report 8252325-X (Version None)
Quarter: 2012Q2

REPORT INFORMATION
  Report Type: 
  Country: None (occurrence: None)
  Receive Date: 20120402
  Receipt Date: 20110502
  Transmission Date: 20120825
  Serious: No
  Sender: FDA-Public Use
  Company Number: US-ABBOTT-11P-163-0804525-00

PATIENT
  Age: 42 Year
  Sex: Male
  Weight: 99.09 kg

DRUGS (4)
  1. TESTOSTERONE [Suspect]
     Indication: BLOOD TESTOSTERONE DECREASED
     Dosage: DAILY DOSE: 5 MILLIGRAM(S), PATCH
     Route: 062
     Dates: start: 20101101, end: 20110101
  2. TESTOSTERONE ENANTHATE [Suspect]
     Indication: BLOOD TESTOSTERONE DECREASED
     Dosage: DAILY DOSE:  UNKNOWN, AS USED: 1 ML/WEEK
     Route: 030
     Dates: start: 20110101
  3. TESTOSTERONE [Suspect]
     Indication: PRODUCT USED FOR UNKNOWN INDICATION
     Dosage: DAILY DOSE:  UNKNOWN
     Route: 062
  4. TESTOSTERONE ENANTHATE [Suspect]
     Indication: OSTEOPENIA

REACTIONS (1)
  - DRUG INEFFECTIVE [None]
